FAERS Safety Report 17912503 (Version 2)
Quarter: 2020Q2

REPORT INFORMATION
  Report Type: Spontaneous
  Country: US (occurrence: US)
  Receive Date: 20200618
  Receipt Date: 20200623
  Transmission Date: 20200714
  Serious: Yes (Hospitalization)
  Sender: FDA-Public Use
  Company Number: US-PFIZER INC-2020236370

PATIENT
  Age: 78 Year
  Sex: Female
  Weight: 69.4 kg

DRUGS (5)
  1. NORPACE [Suspect]
     Active Substance: DISOPYRAMIDE PHOSPHATE
     Indication: CARDIOMYOPATHY
     Dosage: 150MG, THREE TIMES A DAY
     Route: 048
     Dates: end: 202005
  2. RANEXA [Concomitant]
     Active Substance: RANOLAZINE
     Indication: CARDIAC DISORDER
     Dosage: 500 MG, 2X/DAY (500MG TWICE A DAY BY MOUTH)
     Route: 048
  3. SUCRALFATE. [Concomitant]
     Active Substance: SUCRALFATE
     Indication: GASTROOESOPHAGEAL REFLUX DISEASE
     Dosage: 1 G, 4X/DAY (1G FOUR TIMES A DAY)
  4. SPIRONOLACTONE. [Concomitant]
     Active Substance: SPIRONOLACTONE
     Indication: CARDIAC DISORDER
     Dosage: 25 MG, 1X/DAY (25MG ONCE A DAY)
  5. REGLAN [Concomitant]
     Active Substance: METOCLOPRAMIDE HYDROCHLORIDE
     Indication: GASTROOESOPHAGEAL REFLUX DISEASE
     Dosage: 5 MG, 2X/DAY (5MG TWICE A DAY BY MOUTH)
     Route: 048

REACTIONS (3)
  - Dyspnoea [Recovering/Resolving]
  - Off label use [Unknown]
  - Product use in unapproved indication [Unknown]

NARRATIVE: CASE EVENT DATE: 20200517
